FAERS Safety Report 19417885 (Version 13)
Quarter: 2022Q1

REPORT INFORMATION
  Report Type: Report from Study
  Country: ES (occurrence: None)
  Receive Date: 20210615
  Receipt Date: 20220329
  Transmission Date: 20220423
  Serious: Yes (Hospitalization)
  Sender: FDA-Public Use
  Company Number: ES-EISAI MEDICAL RESEARCH-EC-2021-094411

PATIENT
  Age: 69 Year
  Sex: Male
  Weight: 70.4 kg

DRUGS (13)
  1. LENVATINIB [Suspect]
     Active Substance: LENVATINIB
     Indication: Pancreatic carcinoma
     Dosage: UP TO 35 CYCLES OR UNTIL DISEASE PROGRESSION
     Route: 048
     Dates: start: 20210428
  2. PEMBROLIZUMAB [Suspect]
     Active Substance: PEMBROLIZUMAB
     Indication: Pancreatic carcinoma
     Dosage: UP TO 35 CYCLES OR UNTIL DISEASE PROGRESSION
     Route: 042
     Dates: start: 20210428, end: 20210428
  3. PEMBROLIZUMAB [Suspect]
     Active Substance: PEMBROLIZUMAB
     Dosage: UP TO 35 CYCLES OR UNTIL DISEASE PROGRESSION
     Route: 042
     Dates: start: 20210519, end: 20210519
  4. DUTASTERIDE\TAMSULOSIN [Concomitant]
     Active Substance: DUTASTERIDE\TAMSULOSIN
     Dates: start: 202102
  5. PANCRELIPASE [Concomitant]
     Active Substance: PANCRELIPASE
     Dates: start: 202102
  6. NALOXONE HYDROCHLORIDE\OXYCODONE HYDROCHLORIDE [Concomitant]
     Active Substance: NALOXONE HYDROCHLORIDE\OXYCODONE HYDROCHLORIDE
     Dates: start: 202102
  7. OXYCODONE HYDROCHLORIDE [Concomitant]
     Active Substance: OXYCODONE HYDROCHLORIDE
     Dates: start: 202102
  8. DUPHALAC [Concomitant]
     Active Substance: LACTULOSE
     Dates: start: 20210415
  9. GABAPENTIN [Concomitant]
     Active Substance: GABAPENTIN
     Dates: start: 20210415
  10. RIVOTRIL [Concomitant]
     Active Substance: CLONAZEPAM
     Dates: start: 20210415
  11. MOTILIUM [Concomitant]
     Active Substance: DOMPERIDONE
     Dates: start: 20210518
  12. METHYLPREDNISOLONE [Concomitant]
     Active Substance: METHYLPREDNISOLONE
     Dates: start: 20210526, end: 20210619
  13. MESTINON [Concomitant]
     Active Substance: PYRIDOSTIGMINE BROMIDE
     Dates: start: 20210526

REACTIONS (1)
  - Myasthenic syndrome [Recovered/Resolved]

NARRATIVE: CASE EVENT DATE: 20210603
